FAERS Safety Report 19582101 (Version 1)
Quarter: 2021Q3

REPORT INFORMATION
  Report Type: Spontaneous
  Country: US (occurrence: US)
  Receive Date: 20210720
  Receipt Date: 20210720
  Transmission Date: 20211014
  Serious: Yes (Death, Hospitalization, Other)
  Sender: FDA-Public Use
  Company Number: US-LUPIN PHARMACEUTICALS INC.-2021-12284

PATIENT
  Age: 59 Year
  Sex: Male

DRUGS (3)
  1. PREDNISONE. [Suspect]
     Active Substance: PREDNISONE
     Indication: BACK PAIN
     Dosage: UNK,10 DAY COURSE
     Route: 048
  2. DEXAMETHASONE. [Suspect]
     Active Substance: DEXAMETHASONE
     Indication: PRODUCT USED FOR UNKNOWN INDICATION
     Dosage: UNK
     Route: 065
  3. HYDROCORTISONE. [Suspect]
     Active Substance: HYDROCORTISONE
     Indication: ADRENAL INSUFFICIENCY
     Dosage: UNK
     Route: 042

REACTIONS (10)
  - Varicella zoster virus infection [Fatal]
  - Agitation [Unknown]
  - Hydronephrosis [Unknown]
  - Cerebral ventricle dilatation [Unknown]
  - Acute kidney injury [Unknown]
  - Condition aggravated [Fatal]
  - Radiculopathy [Unknown]
  - Unresponsive to stimuli [Unknown]
  - Subarachnoid haemorrhage [Unknown]
  - Intervertebral disc protrusion [Unknown]
